FAERS Safety Report 22989239 (Version 2)
Quarter: 2023Q4

REPORT INFORMATION
  Report Type: Spontaneous
  Country: CN (occurrence: CN)
  Receive Date: 20230927
  Receipt Date: 20231017
  Transmission Date: 20240109
  Serious: Yes (Hospitalization, Other)
  Sender: FDA-Public Use
  Company Number: CN-002147023-NVSC2023CN205679

PATIENT
  Age: 74 Year
  Sex: Female
  Weight: 80 kg

DRUGS (3)
  1. BROLUCIZUMAB [Suspect]
     Active Substance: BROLUCIZUMAB
     Indication: Neovascular age-related macular degeneration
     Dosage: UNK
     Route: 031
     Dates: start: 20230615
  2. BROLUCIZUMAB [Suspect]
     Active Substance: BROLUCIZUMAB
     Indication: Macular degeneration
     Dosage: 6 MG/0.05 ML EACH TIME
     Route: 031
     Dates: start: 20230915, end: 20230915
  3. TOBRADEX [Suspect]
     Active Substance: DEXAMETHASONE\TOBRAMYCIN
     Indication: Visual acuity reduced
     Dosage: UNK (FOR 3 DAYS)
     Route: 065
     Dates: start: 20230916

REACTIONS (13)
  - Retinal vasculitis [Recovering/Resolving]
  - Visual acuity reduced [Recovering/Resolving]
  - Vitreous cyst [Recovering/Resolving]
  - Retinal haemorrhage [Recovering/Resolving]
  - Retinal oedema [Recovered/Resolved]
  - Macular oedema [Not Recovered/Not Resolved]
  - Lenticular opacities [Not Recovered/Not Resolved]
  - Neovascular age-related macular degeneration [Not Recovered/Not Resolved]
  - Vitreous opacities [Recovered/Resolved]
  - Ophthalmological examination abnormal [Not Recovered/Not Resolved]
  - Vitreal cells [Not Recovered/Not Resolved]
  - Foveal reflex abnormal [Not Recovered/Not Resolved]
  - Vision blurred [Unknown]

NARRATIVE: CASE EVENT DATE: 20230823
